FAERS Safety Report 8603001-2 (Version None)
Quarter: 2012Q3

REPORT INFORMATION
  Report Type: 
  Country: None (occurrence: None)
  Receive Date: 20120817
  Receipt Date: 20120507
  Transmission Date: 20120928
  Serious: No
  Sender: FDA-Public Use
  Company Number: US-GLAXOSMITHKLINE-A0977367A

PATIENT
  Age: 60 Year
  Sex: Female

DRUGS (4)
  1. IBUPROFEN [Concomitant]
  2. VOTRIENT [Suspect]
     Indication: RENAL CANCER
     Dosage: 200MG UNKNOWN
     Route: 065
     Dates: start: 20110501
  3. ACYCLOVIR [Concomitant]
  4. IMODIUM A-D [Concomitant]

REACTIONS (1)
  - TREATMENT FAILURE [None]
